FAERS Safety Report 4653007-3 (Version None)
Quarter: 2005Q2

REPORT INFORMATION
  Report Type: 
  Country: None (occurrence: None)
  Receive Date: 20050502
  Receipt Date: 20050502
  Transmission Date: 20051028
  Serious: Yes (Death, Life-Threatening)
  Sender: FDA-Public Use
  Company Number: None

PATIENT
  Age: 58 Year
  Sex: Male

DRUGS (2)
  1. GEMTUZUMAB [Suspect]
     Indication: ACUTE MYELOID LEUKAEMIA
     Dosage: 17MG IV  (9MG/M2)
     Route: 042
     Dates: start: 20050204
  2. GEMTUZUMAB [Suspect]
     Indication: NEOPLASM MALIGNANT
     Dosage: 17MG IV  (9MG/M2)
     Route: 042
     Dates: start: 20050204

REACTIONS (4)
  - HEPATIC FAILURE [None]
  - HYPOTENSION [None]
  - RENAL FAILURE [None]
  - VENOOCCLUSIVE LIVER DISEASE [None]
